FAERS Safety Report 10070002 (Version 7)
Quarter: 2014Q2

REPORT INFORMATION
  Report Type: Spontaneous
  Country: US (occurrence: US)
  Receive Date: 20140410
  Receipt Date: 20140529
  Transmission Date: 20141212
  Serious: Yes (Death)
  Sender: FDA-Public Use
  Company Number: US-JNJFOC-20140406405

PATIENT
  Age: 43 Year
  Sex: Female

DRUGS (2)
  1. XARELTO [Suspect]
     Indication: CEREBROVASCULAR ACCIDENT PROPHYLAXIS
     Dosage: PAST 6 MONTHS
     Route: 048
     Dates: end: 20131206
  2. XARELTO [Suspect]
     Indication: ATRIAL FIBRILLATION
     Dosage: PAST 6 MONTHS
     Route: 048
     Dates: end: 20131206

REACTIONS (1)
  - Cerebral haemorrhage [Fatal]
